FAERS Safety Report 9100429 (Version 1)
Quarter: 2013Q1

REPORT INFORMATION
  Report Type: Spontaneous
  Country: GB (occurrence: GB)
  Receive Date: 20130215
  Receipt Date: 20130215
  Transmission Date: 20140127
  Serious: Yes (Other)
  Sender: FDA-Public Use
  Company Number: PHFR2013GB001170

PATIENT
  Age: 67 Year
  Sex: Female

DRUGS (6)
  1. CLOZAPINE [Suspect]
     Indication: SCHIZOAFFECTIVE DISORDER
     Dosage: VERY SLOW TITRATION OVER EXPOSURE PERIOD TO FINAL DOSE OF 450MG DAILY
     Route: 048
     Dates: start: 201208, end: 201301
  2. CLOZAPINE [Suspect]
     Dosage: 450 MG, UNK
     Route: 048
     Dates: start: 20130110, end: 20130116
  3. LACTULOSE [Concomitant]
  4. DIAZEPAM [Concomitant]
  5. SENNA [Concomitant]
  6. ZOPICLONE [Concomitant]

REACTIONS (7)
  - Cholelithiasis [Unknown]
  - Cholestasis [Recovering/Resolving]
  - Jaundice [Unknown]
  - Chromaturia [Unknown]
  - Malaise [Unknown]
  - Faeces pale [Unknown]
  - Liver function test abnormal [Recovering/Resolving]
